FAERS Safety Report 5825071-7 (Version None)
Quarter: 2008Q3

REPORT INFORMATION
  Report Type: 
  Country: None (occurrence: None)
  Receive Date: 20080729
  Receipt Date: 20080728
  Transmission Date: 20090109
  Serious: Yes (Death)
  Sender: FDA-Public Use
  Company Number: NL-BRISTOL-MYERS SQUIBB COMPANY-14264196

PATIENT
  Sex: Male

DRUGS (3)
  1. CISPLATIN [Suspect]
     Indication: PENIS CARCINOMA
     Dosage: 200 MG/M2
  2. BLEOMYCIN SULFATE [Suspect]
     Indication: PENIS CARCINOMA
  3. METHOTREXATE [Suspect]
     Indication: PENIS CARCINOMA

REACTIONS (1)
  - BRAIN STEM INFARCTION [None]
